FAERS Safety Report 7717211-X (Version None)
Quarter: 2011Q3

REPORT INFORMATION
  Report Type: 
  Country: None (occurrence: None)
  Receive Date: 20110818
  Receipt Date: 20110715
  Transmission Date: 20111222
  Serious: No
  Sender: FDA-Public Use
  Company Number: 1000022214

PATIENT
  Age: 67 Year
  Sex: Female

DRUGS (8)
  1. VIIBRYD [Suspect]
     Indication: DEPRESSION
     Dosage: 10 MG (10 MG, 1 IN 1 D), ORAL, 20 MG (20 MG, 1 IN 1 D), ORAL, 40 MG (40 MG, 1 IN 1 D), ORAL
     Route: 048
     Dates: start: 20110706, end: 20110712
  2. VIIBRYD [Suspect]
     Indication: DEPRESSION
     Dosage: 10 MG (10 MG, 1 IN 1 D), ORAL, 20 MG (20 MG, 1 IN 1 D), ORAL, 40 MG (40 MG, 1 IN 1 D), ORAL
     Route: 048
     Dates: start: 20110713
  3. VIIBRYD [Suspect]
     Indication: DEPRESSION
     Dosage: 10 MG (10 MG, 1 IN 1 D), ORAL, 20 MG (20 MG, 1 IN 1 D), ORAL, 40 MG (40 MG, 1 IN 1 D), ORAL
     Route: 048
     Dates: start: 20110701, end: 20110701
  4. DURAGESIC (FENTANYL TRANSDERMAL) (FENTANYL TRANSDERMAL) [Concomitant]
  5. WELLBUTRIN (BUPROPION) (BUPROPION) [Concomitant]
  6. IMITREX (SUMATRIPTAN) (SUMATRIPTAN) [Concomitant]
  7. ASPIRIN [Concomitant]
  8. XANAX [Concomitant]

REACTIONS (2)
  - INSOMNIA [None]
  - NAUSEA [None]
